FAERS Safety Report 23363552 (Version 2)
Quarter: 2024Q1

REPORT INFORMATION
  Report Type: Report from Study
  Country: US (occurrence: US)
  Receive Date: 20240103
  Receipt Date: 20240226
  Transmission Date: 20240410
  Serious: Yes (Hospitalization)
  Sender: FDA-Public Use
  Company Number: US-Eisai-EC-2023-155144

PATIENT
  Age: 57 Year
  Sex: Female

DRUGS (1)
  1. LENVIMA [Suspect]
     Active Substance: LENVATINIB
     Indication: Endometrial neoplasm
     Route: 048
     Dates: start: 20230917, end: 202312

REACTIONS (3)
  - Hypertension [Recovered/Resolved]
  - Nausea [Unknown]
  - Vomiting [Unknown]

NARRATIVE: CASE EVENT DATE: 20230101
